FAERS Safety Report 23248246 (Version 2)
Quarter: 2023Q4

REPORT INFORMATION
  Report Type: Spontaneous
  Country: GB (occurrence: GB)
  Receive Date: 20231130
  Receipt Date: 20231220
  Transmission Date: 20240110
  Serious: Yes (Other)
  Sender: FDA-Public Use
  Company Number: GB-CELLTRION INC.-2023GB022922

PATIENT

DRUGS (1)
  1. INFLIXIMAB [Suspect]
     Active Substance: INFLIXIMAB
     Indication: Crohn^s disease
     Dosage: 120 MG
     Route: 058
     Dates: start: 202309

REACTIONS (7)
  - Intestinal haemorrhage [Unknown]
  - Frequent bowel movements [Unknown]
  - Bowel movement irregularity [Unknown]
  - Gastrointestinal pain [Unknown]
  - Defaecation urgency [Unknown]
  - Flatulence [Unknown]
  - Fatigue [Unknown]
